FAERS Safety Report 6801131-9 (Version None)
Quarter: 2010Q2

REPORT INFORMATION
  Report Type: 
  Country: None (occurrence: None)
  Receive Date: 20100629
  Receipt Date: 20100617
  Transmission Date: 20101027
  Serious: Yes (Death)
  Sender: FDA-Public Use
  Company Number: KR-PFIZER INC-2009250333

PATIENT
  Age: 61 Year
  Sex: Female
  Weight: 60.6 kg

DRUGS (7)
  1. VORICONAZOLE [Suspect]
     Indication: ASPERGILLOSIS
     Dosage: 360 MG, 2X/DAY
     Route: 042
     Dates: start: 20081215, end: 20081215
  2. MEROPENEM [Concomitant]
     Dates: start: 20081128, end: 20081227
  3. VANCOMYCIN [Concomitant]
     Dates: start: 20081128, end: 20081227
  4. LENOGRASTIM [Concomitant]
     Dates: start: 20081103, end: 20081227
  5. REPAGLINIDE [Concomitant]
     Route: 048
     Dates: start: 20081103, end: 20081220
  6. PHENIRAMINE [Concomitant]
     Indication: ANTIALLERGIC THERAPY
     Dosage: 4 MG, 1X/DAY
     Route: 042
     Dates: start: 20081201, end: 20081226
  7. SEPTRIN [Concomitant]
     Indication: PNEUMONIA
     Dosage: 1600 MG, 2X/DAY
     Route: 048
     Dates: start: 20081206, end: 20081226

REACTIONS (2)
  - ENTEROCOCCAL INFECTION [None]
  - RENAL FAILURE ACUTE [None]
